FAERS Safety Report 5397458-0 (Version None)
Quarter: 2007Q3

REPORT INFORMATION
  Report Type: 
  Country: None (occurrence: None)
  Receive Date: 20070726
  Receipt Date: 20070720
  Transmission Date: 20080115
  Serious: Yes (Other)
  Sender: FDA-Public Use
  Company Number: PHBS2007BR11700

PATIENT
  Age: 56 Year
  Sex: Female
  Weight: 80 kg

DRUGS (2)
  1. FLOTAC [Suspect]
     Indication: BACK PAIN
     Dosage: 70 MG, BID
     Route: 048
     Dates: start: 20070701, end: 20070706
  2. OMEPRAZOLE [Concomitant]
     Dosage: 2TABS/DAY
     Route: 048

REACTIONS (2)
  - FLUID RETENTION [None]
  - SWELLING [None]
